FAERS Safety Report 7048514-2 (Version None)
Quarter: 2010Q4

REPORT INFORMATION
  Report Type: 
  Country: None (occurrence: None)
  Receive Date: 20101007
  Receipt Date: 20101001
  Transmission Date: 20110411
  Serious: Yes (Disabling)
  Sender: FDA-Public Use
  Company Number: CIP10002381

PATIENT
  Age: 77 Year
  Sex: Male

DRUGS (3)
  1. ACTONEL [Suspect]
     Indication: OSTEOPOROSIS
     Dosage: 35 MG ONCE  WEEK, ORAL
     Route: 048
     Dates: start: 20070101, end: 20100927
  2. METHOTREXATE [Concomitant]
  3. CALCIUM CARBONATE W/COLECALCIFEROL (CALCIUM CARBONATE, COLECALCIFEROL) [Concomitant]

REACTIONS (1)
  - TOOTH AVULSION [None]
